FAERS Safety Report 5588563-4 (Version None)
Quarter: 2008Q1

REPORT INFORMATION
  Report Type: 
  Country: None (occurrence: None)
  Receive Date: 20080111
  Receipt Date: 20070327
  Transmission Date: 20080703
  Serious: No
  Sender: FDA-Public Use
  Company Number: US-BRISTOL-MYERS SQUIBB COMPANY-13727623

PATIENT
  Age: 38 Year
  Sex: Female
  Weight: 53 kg

DRUGS (5)
  1. TRAZODONE HCL [Suspect]
     Indication: INSOMNIA
     Dates: start: 20070305
  2. LUNESTA [Concomitant]
  3. ROGAINE [Concomitant]
     Route: 061
  4. NIZORAL [Concomitant]
     Route: 061
  5. VITAMINS [Concomitant]

REACTIONS (6)
  - DIZZINESS [None]
  - DYSGEUSIA [None]
  - DYSPNOEA [None]
  - MALAISE [None]
  - THIRST [None]
  - VISION BLURRED [None]
